FAERS Safety Report 4998327-8 (Version None)
Quarter: 2006Q2

REPORT INFORMATION
  Report Type: 
  Country: None (occurrence: None)
  Receive Date: 20060508
  Receipt Date: 20060427
  Transmission Date: 20061013
  Serious: Yes (Other)
  Sender: FDA-Public Use
  Company Number: 2006035905

PATIENT
  Age: 84 Year
  Sex: Female

DRUGS (5)
  1. XANAX [Suspect]
     Indication: SLEEP DISORDER
     Dosage: 10 MG (10 MG, AS NECESSARY),
  2. DETROL LA [Suspect]
     Indication: ILL-DEFINED DISORDER
     Dosage: (4 MG)
  3. ARICEPT [Suspect]
     Indication: AMNESIA
     Dosage: 5 MG (5 MG,  1 IN 1 D),
     Dates: start: 20050901
  4. MELATONIN (MELATONIN) [Concomitant]
  5. NEXIUM [Concomitant]

REACTIONS (5)
  - EAR PAIN [None]
  - GINGIVAL PAIN [None]
  - INITIAL INSOMNIA [None]
  - POLLAKIURIA [None]
  - TRIGEMINAL NEURALGIA [None]
